FAERS Safety Report 10638473 (Version 1)
Quarter: 2014Q4

REPORT INFORMATION
  Report Type: Spontaneous
  Country: US (occurrence: None)
  Receive Date: 20141121
  Receipt Date: 20141121
  Transmission Date: 20150529
  Serious: No
  Sender: FDA-Public Use
  Company Number: 163-10004-14090117

PATIENT
  Age: 67 Year
  Sex: Female

DRUGS (9)
  1. LISINOPRIL (LISINOPRIL) (20 MILLIGRAM, UNKNOWN) [Concomitant]
  2. METOLAZONE (METOLAZONE) (2.5 MILLIGRAM, UNKNOWN) [Concomitant]
  3. XANAX (ALPRAZOLAM) (0.25 MILLIGRAM, UNKNOWN) [Concomitant]
  4. ATENOLOL (ATENOLOL) (25 MILLIGRAM, UNKNOWN) [Concomitant]
  5. METFORMIN (METFORMIN) (500 MILLIGRAM UNKNOWN) [Concomitant]
  6. K-DUR (POTASSIUM CHLORIDE) (20 MILLIEQUIVALENTS, UNKNOWN) [Concomitant]
  7. OTEZLA [Suspect]
     Active Substance: APREMILAST
     Indication: PSORIATIC ARTHROPATHY
     Dosage: 60 MG, 2 IN 1 D, PO
     Route: 048
     Dates: start: 20140708, end: 20140729
  8. ELAVIL (AMITRIPTYLINE HYDROCHLORIDE) (25 MIILIGRAM, UNKNOWN) [Concomitant]
  9. ROPINIROLE (ROPINIROLE) (1 MILLIGRAM, UNKNOWN) [Concomitant]

REACTIONS (3)
  - Nausea [None]
  - Diarrhoea [None]
  - Headache [None]

NARRATIVE: CASE EVENT DATE: 20140708
